FAERS Safety Report 6098619-8 (Version None)
Quarter: 2009Q1

REPORT INFORMATION
  Report Type: 
  Country: None (occurrence: None)
  Receive Date: 20090302
  Receipt Date: 20090224
  Transmission Date: 20090719
  Serious: Yes (Death, Hospitalization)
  Sender: FDA-Public Use
  Company Number: US-BAYER-200911685NA

PATIENT
  Sex: Male

DRUGS (3)
  1. LEUKINE [Suspect]
     Indication: LUNG NEOPLASM MALIGNANT
     Dosage: TOTAL DAILY DOSE: 0.35 MG
     Route: 058
     Dates: start: 20090116, end: 20090116
  2. LEUKINE [Suspect]
     Dosage: TOTAL DAILY DOSE: 0.35 MG
     Route: 058
     Dates: start: 20090117, end: 20090117
  3. LEUKINE [Suspect]
     Dosage: TOTAL DAILY DOSE: 0.20 MG
     Route: 058
     Dates: start: 20090117, end: 20090117

REACTIONS (1)
  - ADVERSE EVENT [None]
